FAERS Safety Report 25464301 (Version 1)
Quarter: 2025Q2

REPORT INFORMATION
  Report Type: Spontaneous
  Country: US (occurrence: US)
  Receive Date: 20250621
  Receipt Date: 20250621
  Transmission Date: 20250716
  Serious: No
  Sender: TOLMAR
  Company Number: US-Tolmar-TLM-2025-02417

PATIENT

DRUGS (2)
  1. ELIGARD [Suspect]
     Active Substance: LEUPROLIDE ACETATE
     Indication: Product used for unknown indication
  2. DEVICE [Suspect]
     Active Substance: DEVICE
     Indication: Product used for unknown indication

REACTIONS (4)
  - Intercepted product preparation error [Unknown]
  - Device occlusion [Unknown]
  - Device leakage [Unknown]
  - Wrong technique in product usage process [Unknown]
